FAERS Safety Report 25719261 (Version 1)
Quarter: 2025Q3

REPORT INFORMATION
  Report Type: Report from Study
  Country: KR (occurrence: KR)
  Receive Date: 20250824
  Receipt Date: 20250824
  Transmission Date: 20251020
  Serious: Yes (Other)
  Sender: JOHNSON AND JOHNSON
  Company Number: KR-JNJFOC-20240409375

PATIENT
  Age: 52 Year
  Sex: Male

DRUGS (4)
  1. LAZERTINIB [Suspect]
     Active Substance: LAZERTINIB
     Indication: Non-small cell lung cancer
     Route: 048
     Dates: start: 20230831, end: 20240704
  2. PEMETREXED [Concomitant]
     Active Substance: PEMETREXED
     Indication: Chemotherapy
     Dates: start: 20240709, end: 20240911
  3. PEMETREXED [Concomitant]
     Active Substance: PEMETREXED
     Dates: start: 20241002, end: 20241126
  4. CISPLATIN [Concomitant]
     Active Substance: CISPLATIN
     Indication: Chemotherapy
     Dates: start: 20240709, end: 20240911

REACTIONS (4)
  - Erythema multiforme [Recovered/Resolved]
  - Stomatitis [Recovered/Resolved]
  - Pruritus [Recovered/Resolved]
  - Paraesthesia [Recovering/Resolving]

NARRATIVE: CASE EVENT DATE: 20230907
